FAERS Safety Report 20220986 (Version 1)
Quarter: 2021Q4

REPORT INFORMATION
  Report Type: Spontaneous
  Country: None (occurrence: KR)
  Receive Date: 20211223
  Receipt Date: 20211223
  Transmission Date: 20220303
  Serious: Yes (Life-Threatening, Hospitalization)
  Sender: FDA-Public Use
  Company Number: KR-Acacia Pharma Limited-2123303

PATIENT
  Age: 69 Year
  Sex: Female

DRUGS (5)
  1. BYFAVO [Suspect]
     Active Substance: REMIMAZOLAM BESYLATE
     Indication: Sedative therapy
     Route: 042
     Dates: start: 20211207, end: 20211207
  2. MIDAZOLAM [Concomitant]
     Active Substance: MIDAZOLAM
     Dates: start: 20211207
  3. FENTANYL [Concomitant]
     Active Substance: FENTANYL
     Dates: start: 20211207
  4. LIDOCAINE [Concomitant]
     Active Substance: LIDOCAINE
     Dates: start: 20211207
  5. EPINEPHRINE [Concomitant]
     Active Substance: EPINEPHRINE
     Dates: start: 20211207

REACTIONS (2)
  - Cardiac arrest [Recovered/Resolved]
  - Off label use [Unknown]

NARRATIVE: CASE EVENT DATE: 20211207
